FAERS Safety Report 4548507-0 (Version None)
Quarter: 2005Q1

REPORT INFORMATION
  Report Type: 
  Country: None (occurrence: None)
  Receive Date: 20050110
  Receipt Date: 20041230
  Transmission Date: 20050727
  Serious: Yes (Hospitalization)
  Sender: FDA-Public Use
  Company Number: FR-GLAXOSMITHKLINE-B0363107A

PATIENT
  Sex: Female
  Weight: 1.8 kg

DRUGS (9)
  1. RETROVIR [Suspect]
     Indication: ANTIVIRAL PROPHYLAXIS
     Route: 042
     Dates: start: 20041209
  2. CLAMOXYL [Suspect]
     Indication: NEONATAL INFECTION
     Route: 042
     Dates: start: 20041209, end: 20041210
  3. RETROVIR [Suspect]
     Dates: start: 20041209, end: 20041209
  4. RETROVIR [Suspect]
     Indication: HIV INFECTION
  5. VIDEX [Suspect]
     Indication: HIV INFECTION
  6. VIRACEPT [Suspect]
     Indication: HIV INFECTION
  7. TRANQUITAL [Suspect]
  8. CLAFORAN [Concomitant]
     Indication: NEONATAL INFECTION
     Route: 042
     Dates: start: 20041210
  9. GENTAMYCINE [Concomitant]
     Indication: NEONATAL INFECTION
     Route: 042
     Dates: start: 20041210

REACTIONS (3)
  - DRUG EXPOSURE DURING PREGNANCY [None]
  - NEONATAL RESPIRATORY DISTRESS SYNDROME [None]
  - TREMOR [None]
